FAERS Safety Report 8002624-1 (Version None)
Quarter: 2011Q4

REPORT INFORMATION
  Report Type: 
  Country: None (occurrence: None)
  Receive Date: 20111222
  Receipt Date: 20111215
  Transmission Date: 20120403
  Serious: Yes (Life-Threatening, Hospitalization)
  Sender: FDA-Public Use
  Company Number: JP-GLAXOSMITHKLINE-B0759284A

PATIENT
  Sex: Female

DRUGS (4)
  1. ZYPREXA [Concomitant]
     Indication: BIPOLAR DISORDER
     Dosage: 5MG PER DAY
     Route: 048
     Dates: start: 20110901, end: 20111012
  2. LAMICTAL [Suspect]
     Indication: BIPOLAR DISORDER
     Dosage: 25MG PER DAY
     Route: 048
     Dates: start: 20110901, end: 20111012
  3. SEROQUEL [Concomitant]
     Indication: BIPOLAR DISORDER
     Dosage: 25MG PER DAY
     Route: 048
     Dates: start: 20110901, end: 20111012
  4. DEPAS [Concomitant]
     Indication: BIPOLAR DISORDER
     Dosage: .5MG PER DAY
     Route: 048
     Dates: start: 20110901, end: 20111012

REACTIONS (25)
  - LYMPHADENOPATHY [None]
  - GAMMA-GLUTAMYLTRANSFERASE INCREASED [None]
  - DRUG RASH WITH EOSINOPHILIA AND SYSTEMIC SYMPTOMS [None]
  - MUSCULAR WEAKNESS [None]
  - MALAISE [None]
  - CONJUNCTIVAL HYPERAEMIA [None]
  - BLOOD CREATINE PHOSPHOKINASE ABNORMAL [None]
  - LYMPHOCYTE COUNT DECREASED [None]
  - LYMPHOCYTE MORPHOLOGY ABNORMAL [None]
  - ASPARTATE AMINOTRANSFERASE INCREASED [None]
  - RASH GENERALISED [None]
  - HEPATIC FUNCTION ABNORMAL [None]
  - WHITE BLOOD CELL COUNT INCREASED [None]
  - NEUTROPHIL COUNT INCREASED [None]
  - PYREXIA [None]
  - HEPATOMEGALY [None]
  - GENERALISED ERYTHEMA [None]
  - ERYTHEMA OF EYELID [None]
  - BLOOD ALKALINE PHOSPHATASE INCREASED [None]
  - ERYTHEMA [None]
  - LYMPHOCYTIC INFILTRATION [None]
  - LIVER DISORDER [None]
  - C-REACTIVE PROTEIN INCREASED [None]
  - ALANINE AMINOTRANSFERASE INCREASED [None]
  - BLOOD LACTATE DEHYDROGENASE INCREASED [None]
